FAERS Safety Report 5409676-3 (Version None)
Quarter: 2007Q3

REPORT INFORMATION
  Report Type: 
  Country: None (occurrence: None)
  Receive Date: 20070809
  Receipt Date: 20070801
  Transmission Date: 20080115
  Serious: Yes (Other)
  Sender: FDA-Public Use
  Company Number: JP-ELI_LILLY_AND_COMPANY-JP200708000889

PATIENT
  Age: 55 Year
  Sex: Male

DRUGS (2)
  1. GEMZAR [Suspect]
     Indication: PANCREATIC CARCINOMA
     Route: 042
  2. RHYTHMY [Concomitant]
     Route: 048

REACTIONS (2)
  - DYSCALCULIA [None]
  - LEUKOENCEPHALOPATHY [None]
